FAERS Safety Report 23295768 (Version 1)
Quarter: 2023Q4

REPORT INFORMATION
  Report Type: Spontaneous
  Country: GB (occurrence: None)
  Receive Date: 20231214
  Receipt Date: 20231214
  Transmission Date: 20240110
  Serious: Yes (Other)
  Sender: FDA-Public Use
  Company Number: GB-ARIS GLOBAL-SUP202312-004745

PATIENT
  Age: 57 Year
  Sex: Female

DRUGS (1)
  1. TOPIRAMATE [Suspect]
     Active Substance: TOPIRAMATE
     Indication: Migraine
     Dosage: NOT PROVIDED

REACTIONS (2)
  - Alice in wonderland syndrome [Unknown]
  - Transient ischaemic attack [Unknown]
